FAERS Safety Report 9312172 (Version 1)
Quarter: 2013Q2

REPORT INFORMATION
  Report Type: Spontaneous
  Country: IT (occurrence: IT)
  Receive Date: 20130528
  Receipt Date: 20130528
  Transmission Date: 20140414
  Serious: Yes (Other)
  Sender: FDA-Public Use
  Company Number: IT-TEVA-406033ISR

PATIENT
  Age: 40 Year
  Sex: Male
  Weight: 75 kg

DRUGS (7)
  1. FLUOROURACILE TEVA [Suspect]
     Indication: COLON CANCER
     Dosage: 1158 MILLIGRAM DAILY;
     Route: 042
     Dates: start: 20130415, end: 20130416
  2. FLUOROURACILE TEVA [Suspect]
     Dosage: 777 MILLIGRAM DAILY;
     Route: 040
     Dates: start: 20130415, end: 20130415
  3. IRINOTECAN HOSPIRA [Suspect]
     Indication: COLON CANCER
     Dosage: 347.4 MILLIGRAM DAILY;
     Route: 042
     Dates: start: 20130415, end: 20130415
  4. ONDASENTRONE HIKMA [Concomitant]
     Dosage: 8 MILLIGRAM DAILY;
     Route: 042
     Dates: start: 20130415, end: 20130415
  5. LEVOFOLENE [Concomitant]
     Dosage: 193 MILLIGRAM DAILY;
     Route: 042
     Dates: start: 20130415, end: 20130415
  6. RANIDIL [Concomitant]
     Dosage: 50 MILLIGRAM DAILY;
     Route: 042
     Dates: start: 20130415, end: 20130415
  7. SOLDESAM [Concomitant]
     Dosage: 8 MILLIGRAM DAILY;
     Route: 042
     Dates: start: 20130415, end: 20130415

REACTIONS (4)
  - Abdominal pain [Unknown]
  - Diarrhoea [Unknown]
  - Nausea [Unknown]
  - Vomiting [Unknown]
